FAERS Safety Report 17755437 (Version 1)
Quarter: 2020Q2

REPORT INFORMATION
  Report Type: Spontaneous
  Country: US (occurrence: US)
  Receive Date: 20200507
  Receipt Date: 20200507
  Transmission Date: 20200714
  Serious: No
  Sender: FDA-Public Use
  Company Number: US-MYLANLABS-2020M1041434

PATIENT
  Age: 74 Year
  Sex: Female

DRUGS (1)
  1. ARMODAFINIL. [Suspect]
     Active Substance: ARMODAFINIL
     Indication: SLEEP APNOEA SYNDROME
     Dosage: 250 MILLIGRAM, QD FOR 8 YEARS

REACTIONS (3)
  - Product use issue [Unknown]
  - No adverse event [Unknown]
  - Therapeutic response unexpected [Unknown]
